FAERS Safety Report 4530129-9 (Version None)
Quarter: 2004Q4

REPORT INFORMATION
  Report Type: 
  Country: None (occurrence: None)
  Receive Date: 20041217
  Receipt Date: 20041208
  Transmission Date: 20050328
  Serious: Yes (Life-Threatening)
  Sender: FDA-Public Use
  Company Number: JP-JNJFOC-20041106817

PATIENT
  Sex: Male

DRUGS (14)
  1. HALOPERIDOL DECANOATE [Suspect]
     Route: 030
  2. HALOPERIDOL DECANOATE [Suspect]
     Indication: SCHIZOPHRENIA
     Route: 030
  3. HALOPERIDOL [Suspect]
     Indication: SCHIZOPHRENIA
     Route: 030
  4. HALOPERIDOL [Suspect]
     Route: 049
  5. HALOPERIDOL [Suspect]
     Route: 049
  6. BIPERIDEN LACTATE [Concomitant]
     Indication: SCHIZOPHRENIA
     Route: 030
  7. LEVOMEPROMAZINE HYDROCHLORIDE [Concomitant]
     Indication: SCHIZOPHRENIA
     Route: 030
  8. PROMETHAZINE HCL [Concomitant]
     Indication: SCHIZOPHRENIA
     Route: 030
  9. BIPERIDEN HYDROCHLORIDE [Concomitant]
     Indication: SCHIZOPHRENIA
     Route: 049
  10. CARBAMAZEPINE [Concomitant]
     Indication: INSOMNIA
     Route: 049
  11. FLUNITRAZEPAM [Concomitant]
     Indication: INSOMNIA
     Route: 049
  12. NITRAZEPAM [Concomitant]
     Indication: INSOMNIA
     Route: 049
  13. BROTIZOLAM [Concomitant]
     Indication: INSOMNIA
     Route: 049
  14. TRIAZOLAM [Concomitant]
     Indication: INSOMNIA
     Route: 049

REACTIONS (15)
  - ALANINE AMINOTRANSFERASE [None]
  - ASPIRATION [None]
  - CARDIO-RESPIRATORY ARREST [None]
  - DEEP VEIN THROMBOSIS [None]
  - DEHYDRATION [None]
  - DISSEMINATED INTRAVASCULAR COAGULATION [None]
  - ELECTROLYTE IMBALANCE [None]
  - HAEMODIALYSIS [None]
  - MARKEDLY REDUCED DIETARY INTAKE [None]
  - MENTAL DISORDER [None]
  - NEUROLEPTIC MALIGNANT SYNDROME [None]
  - PNEUMONIA [None]
  - PROCEDURAL COMPLICATION [None]
  - PULMONARY INFARCTION [None]
  - RENAL FAILURE ACUTE [None]
